FAERS Safety Report 19265006 (Version 1)
Quarter: 2021Q2

REPORT INFORMATION
  Report Type: Report from Study
  Country: NL (occurrence: NL)
  Receive Date: 20210517
  Receipt Date: 20210517
  Transmission Date: 20210717
  Serious: Yes (Congenital Anomaly, Other)
  Sender: FDA-Public Use
  Company Number: NL-MYLANLABS-2021M1028783

PATIENT

DRUGS (7)
  1. FLUOROURACIL. [Suspect]
     Active Substance: FLUOROURACIL
     Indication: DRUG THERAPY
     Dosage: UNK
     Route: 064
  2. CYCLOPHOSPHAMIDE. [Suspect]
     Active Substance: CYCLOPHOSPHAMIDE
     Indication: DRUG THERAPY
     Dosage: UNK
     Route: 064
  3. DOCETAXEL. [Suspect]
     Active Substance: DOCETAXEL
     Indication: DRUG THERAPY
     Dosage: UNK
     Route: 064
  4. EPIRUBICIN [Suspect]
     Active Substance: EPIRUBICIN
     Indication: DRUG THERAPY
     Dosage: UNK
     Route: 064
  5. PEGFILGRASTIM [Suspect]
     Active Substance: PEGFILGRASTIM
     Indication: DRUG THERAPY
     Dosage: UNK
     Route: 064
  6. PEGFILGRASTIM [Suspect]
     Active Substance: PEGFILGRASTIM
     Indication: PROPHYLAXIS
  7. PEGFILGRASTIM [Suspect]
     Active Substance: PEGFILGRASTIM
     Indication: NEUTROPENIA

REACTIONS (2)
  - Foetal exposure during pregnancy [Recovered/Resolved]
  - Uvula aplasia [Unknown]
